FAERS Safety Report 10927575 (Version 2)
Quarter: 2015Q2

REPORT INFORMATION
  Report Type: Spontaneous
  Country: US (occurrence: US)
  Receive Date: 20150318
  Receipt Date: 20150513
  Transmission Date: 20150821
  Serious: Yes (Other)
  Sender: FDA-Public Use
  Company Number: US-UCBSA-2015007391

PATIENT
  Sex: Female

DRUGS (1)
  1. CIMZIA [Suspect]
     Active Substance: CERTOLIZUMAB PEGOL
     Indication: RHEUMATOID ARTHRITIS
     Dosage: 400 MG, EV 4 WEEKS
     Route: 058
     Dates: start: 20131202, end: 20140127

REACTIONS (26)
  - Pyrexia [Unknown]
  - Overdose [Unknown]
  - Angioedema [Unknown]
  - Flushing [Unknown]
  - Nausea [Unknown]
  - Rash [Unknown]
  - Dry eye [Unknown]
  - Anaemia [Unknown]
  - Oedema [Unknown]
  - Palpitations [Unknown]
  - Hypertension [Unknown]
  - Hypotension [Unknown]
  - Dyspnoea [Unknown]
  - Anxiety [Unknown]
  - Constipation [Unknown]
  - Diarrhoea [Unknown]
  - Headache [Unknown]
  - Drug ineffective [Unknown]
  - Chest pain [Unknown]
  - Chills [Unknown]
  - Vomiting [Unknown]
  - Injection site erythema [Unknown]
  - Wheezing [Unknown]
  - Injection site bruising [Unknown]
  - Injection site pain [Unknown]
  - Laboratory test abnormal [Unknown]

NARRATIVE: CASE EVENT DATE: 2014
